FAERS Safety Report 6171734-6 (Version None)
Quarter: 2009Q2

REPORT INFORMATION
  Report Type: 
  Country: None (occurrence: None)
  Receive Date: 20090429
  Receipt Date: 20090424
  Transmission Date: 20091009
  Serious: Yes (Hospitalization)
  Sender: FDA-Public Use
  Company Number: B0572253A

PATIENT
  Sex: Female

DRUGS (8)
  1. ELONTRIL [Suspect]
     Dosage: 150MG AS DIRECTED
     Route: 048
     Dates: start: 20081030, end: 20081130
  2. SIMVASTATIN [Concomitant]
     Dates: start: 20080901
  3. INDAPAMIDE [Concomitant]
     Dates: start: 20070801
  4. CALCIPOTRIENE [Concomitant]
     Dates: start: 20080601
  5. LISINOPRIL [Concomitant]
     Dates: start: 20070801
  6. DICLOFENAC [Concomitant]
     Dates: start: 20070601
  7. CARTEOLOL HYDROCHLORIDE [Concomitant]
  8. CLOBETASOL PROPIONATE [Concomitant]
     Dates: start: 20070301

REACTIONS (9)
  - DERMATOSIS [None]
  - PRURIGO [None]
  - PRURITUS [None]
  - PSORIASIS [None]
  - RASH PAPULAR [None]
  - RASH PUSTULAR [None]
  - SKIN EXFOLIATION [None]
  - SKIN LESION [None]
  - TOXIC SKIN ERUPTION [None]
